FAERS Safety Report 8249448-8 (Version None)
Quarter: 2012Q1

REPORT INFORMATION
  Report Type: 
  Country: None (occurrence: None)
  Receive Date: 20120316
  Receipt Date: 20100419
  Transmission Date: 20120608
  Serious: Yes (Other)
  Sender: FDA-Public Use
  Company Number: PHHY2010US25095

PATIENT
  Sex: Female

DRUGS (2)
  1. TEKTURNA [Suspect]
  2. VALTURNA (ALIKIREN, VALSARTAN) UNKNOWN [Suspect]

REACTIONS (1)
  - BLOOD PRESSURE FLUCTUATION [None]
